FAERS Safety Report 7180799-4 (Version None)
Quarter: 2010Q4

REPORT INFORMATION
  Report Type: 
  Country: None (occurrence: None)
  Receive Date: 20101221
  Receipt Date: 20101207
  Transmission Date: 20110411
  Serious: Yes (Other)
  Sender: FDA-Public Use
  Company Number: FR-MYLANLABS-2010S1022780

PATIENT
  Age: 44 Year
  Sex: Male

DRUGS (2)
  1. METHYLPREDNISOLONE [Suspect]
     Indication: PROGRESSIVE MULTIPLE SCLEROSIS
     Route: 042
  2. AMITRIPTYLINE [Suspect]
     Dosage: 25MG DAILY
     Route: 065

REACTIONS (1)
  - BRUGADA SYNDROME [None]
